FAERS Safety Report 6660947-2 (Version None)
Quarter: 2010Q1

REPORT INFORMATION
  Report Type: 
  Country: None (occurrence: None)
  Receive Date: 20100331
  Receipt Date: 20100309
  Transmission Date: 20100710
  Serious: No
  Sender: FDA-Public Use
  Company Number: US-BIOGENIDEC-2010BI008191

PATIENT
  Age: 41 Year
  Sex: Female

DRUGS (1)
  1. TYSABRI [Suspect]
     Indication: MULTIPLE SCLEROSIS
     Route: 042
     Dates: start: 20090623

REACTIONS (7)
  - GENERAL SYMPTOM [None]
  - HEADACHE [None]
  - MENTAL DISORDER [None]
  - MENTAL IMPAIRMENT [None]
  - MIGRAINE [None]
  - SPEECH DISORDER [None]
  - TINNITUS [None]
